FAERS Safety Report 24829419 (Version 2)
Quarter: 2025Q1

REPORT INFORMATION
  Report Type: Spontaneous
  Country: US (occurrence: US)
  Receive Date: 20250110
  Receipt Date: 20250211
  Transmission Date: 20250409
  Serious: Yes (Death, Life-Threatening, Hospitalization)
  Sender: STRIDES
  Company Number: None

PATIENT

DRUGS (2)
  1. VANCOMYCIN [Suspect]
     Active Substance: VANCOMYCIN
     Indication: Pneumonia
     Route: 065
  2. CEFEPIME [Suspect]
     Active Substance: CEFEPIME HYDROCHLORIDE
     Indication: Pneumonia
     Route: 065

REACTIONS (8)
  - Stevens-Johnson syndrome [Fatal]
  - Oral disorder [Fatal]
  - Oesophageal disorder [Fatal]
  - Melaena [Fatal]
  - Oesophagitis [Fatal]
  - Gastrointestinal ulcer [Fatal]
  - Gastrointestinal haemorrhage [Fatal]
  - Off label use [Unknown]
